FAERS Safety Report 8889053 (Version 2)
Quarter: 2012Q4

REPORT INFORMATION
  Report Type: Report from Study
  Country: DK (occurrence: DK)
  Receive Date: 20121106
  Receipt Date: 20121227
  Transmission Date: 20130627
  Serious: Yes (Death)
  Sender: FDA-Public Use
  Company Number: DK-ROCHE-1152566

PATIENT

DRUGS (3)
  1. CAPECITABINE [Suspect]
     Indication: GASTRIC CANCER
     Route: 065
  2. TAXOTERE [Suspect]
     Indication: GASTRIC CANCER
     Route: 065
  3. ELOXATIN [Suspect]
     Indication: GASTRIC CANCER
     Route: 065

REACTIONS (3)
  - Neutropenic sepsis [Fatal]
  - Neutropenia [Fatal]
  - Diarrhoea [Fatal]
